FAERS Safety Report 10030210 (Version 2)
Quarter: 2014Q1

REPORT INFORMATION
  Report Type: Spontaneous
  Country: US (occurrence: US)
  Receive Date: 20140323
  Receipt Date: 20140323
  Transmission Date: 20141002
  Serious: No
  Sender: FDA-Public Use
  Company Number: US-ALLERGAN-1308781US

PATIENT
  Age: 71 Year
  Sex: Female

DRUGS (3)
  1. LATISSE 0.03% [Suspect]
     Indication: GROWTH OF EYELASHES
     Dosage: 2 GTT, QHS
     Dates: start: 20130603, end: 20130607
  2. SINGULAIR [Concomitant]
     Indication: ASTHMA
     Dosage: UNK UNK, QD
     Route: 048
  3. THEOPHYLLINE [Concomitant]
     Indication: ASTHMA
     Dosage: UNK UNK, QD
     Route: 048

REACTIONS (4)
  - Wrong technique in drug usage process [Unknown]
  - Madarosis [Recovered/Resolved]
  - Madarosis [Unknown]
  - Madarosis [Unknown]
